FAERS Safety Report 7904231-5 (Version None)
Quarter: 2011Q4

REPORT INFORMATION
  Report Type: 
  Country: None (occurrence: None)
  Receive Date: 20111109
  Receipt Date: 20111101
  Transmission Date: 20120403
  Serious: No
  Sender: FDA-Public Use
  Company Number: US-B.I. PHARMACEUTICALS,INC./RIDGEFIELD-2011-BP-25467BP

PATIENT
  Sex: Female

DRUGS (6)
  1. SPIRIVA [Suspect]
     Indication: CHRONIC OBSTRUCTIVE PULMONARY DISEASE
     Dosage: 18 MCG
     Route: 055
     Dates: start: 20110930
  2. SPIRIVA [Suspect]
     Route: 048
     Dates: start: 20111101, end: 20111101
  3. PROPRANOLOL [Concomitant]
     Indication: HYPERTENSION
  4. ARIMIDEX [Concomitant]
     Indication: BREAST CANCER
  5. SIMVASTATIN [Concomitant]
     Indication: BLOOD CHOLESTEROL INCREASED
  6. TESSALON [Concomitant]
     Indication: COUGH

REACTIONS (1)
  - INCORRECT ROUTE OF DRUG ADMINISTRATION [None]
